FAERS Safety Report 9680973 (Version 1)
Quarter: 2013Q4

REPORT INFORMATION
  Report Type: Spontaneous
  Country: US (occurrence: US)
  Receive Date: 20131111
  Receipt Date: 20131111
  Transmission Date: 20140711
  Serious: No
  Sender: FDA-Public Use
  Company Number: US-PFIZER INC-2013317684

PATIENT
  Sex: Female

DRUGS (3)
  1. BICILLIN L-A [Suspect]
     Dosage: UNK
  2. CHANTIX [Interacting]
     Dosage: UNK
     Route: 048
     Dates: start: 20131105
  3. HYDROCODONE [Interacting]
     Dosage: UNK

REACTIONS (2)
  - Drug interaction [Unknown]
  - Vomiting [Unknown]
